FAERS Safety Report 5320220-1 (Version None)
Quarter: 2007Q2

REPORT INFORMATION
  Report Type: 
  Country: None (occurrence: None)
  Receive Date: 20070509
  Receipt Date: 20070507
  Transmission Date: 20071010
  Serious: Yes (Hospitalization)
  Sender: FDA-Public Use
  Company Number: B0462728A

PATIENT
  Age: 48 Year
  Sex: Male

DRUGS (10)
  1. LAMICTAL [Suspect]
     Indication: EPILEPSY
     Route: 048
     Dates: start: 20070101
  2. URBANYL [Concomitant]
     Dosage: 5MG PER DAY
     Route: 048
     Dates: end: 20070101
  3. PLAVIX [Concomitant]
     Dosage: 75MG PER DAY
     Route: 048
  4. TRIATEC [Concomitant]
     Dosage: 2.5MG PER DAY
     Route: 048
  5. LESCOL [Concomitant]
     Dosage: 80MG PER DAY
     Route: 048
  6. CELLCEPT [Concomitant]
     Dosage: 500MG FOUR TIMES PER DAY
     Route: 048
  7. NEORAL [Concomitant]
     Dosage: 6UNIT PER DAY
     Route: 048
  8. TENORMIN [Concomitant]
     Dosage: 50MG PER DAY
     Route: 048
  9. NEURONTIN [Concomitant]
     Dosage: 900MG PER DAY
     Route: 048
     Dates: start: 20070201
  10. RIVOTRIL [Concomitant]
     Route: 048

REACTIONS (3)
  - DYSPHAGIA [None]
  - EPILEPSY [None]
  - ORAL DISCOMFORT [None]
